FAERS Safety Report 20379859 (Version 2)
Quarter: 2022Q1

REPORT INFORMATION
  Report Type: Spontaneous
  Country: DE (occurrence: DE)
  Receive Date: 20220126
  Receipt Date: 20220218
  Transmission Date: 20220423
  Serious: Yes (Other)
  Sender: FDA-Public Use
  Company Number: DE-009507513-2201DEU006721

PATIENT
  Age: 53 Year
  Sex: Female
  Weight: 58 kg

DRUGS (4)
  1. KEYTRUDA [Suspect]
     Active Substance: PEMBROLIZUMAB
     Indication: Non-small cell lung cancer metastatic
     Dosage: 200 MILLIGRAM, Q3W
     Route: 042
     Dates: start: 20211022, end: 20220104
  2. KEYTRUDA [Suspect]
     Active Substance: PEMBROLIZUMAB
     Indication: Metastases to central nervous system
  3. CISPLATIN [Concomitant]
     Active Substance: CISPLATIN
     Dosage: UNK
     Dates: start: 202110
  4. PEMETREXED [Concomitant]
     Active Substance: PEMETREXED
     Dosage: UNK
     Dates: start: 202110

REACTIONS (5)
  - Immune-mediated neuropathy [Recovered/Resolved with Sequelae]
  - Strabismus [Unknown]
  - Facial paresis [Unknown]
  - Eyelid ptosis [Recovering/Resolving]
  - VIth nerve disorder [Recovered/Resolved]

NARRATIVE: CASE EVENT DATE: 20211220
